FAERS Safety Report 16444857 (Version 7)
Quarter: 2019Q3

REPORT INFORMATION
  Report Type: Spontaneous
  Country: CZ (occurrence: CZ)
  Receive Date: 20190618
  Receipt Date: 20190829
  Transmission Date: 20191004
  Serious: Yes (Hospitalization)
  Sender: FDA-Public Use
  Company Number: CZ-MYLANLABS-2019M1055602

PATIENT
  Age: 25 Year
  Sex: Male

DRUGS (43)
  1. PREDNISONE. [Suspect]
     Active Substance: PREDNISONE
     Indication: CHRONIC SPONTANEOUS URTICARIA
     Dosage: 10 MILLIGRAM, QD
     Route: 048
     Dates: start: 2016, end: 201612
  2. PREDNISONE. [Suspect]
     Active Substance: PREDNISONE
     Dosage: 60 MILLIGRAM, QD
     Route: 048
     Dates: start: 20160212, end: 20160225
  3. PREDNISONE. [Suspect]
     Active Substance: PREDNISONE
     Dosage: 40 MILLIGRAM, QD
     Route: 048
     Dates: start: 20160226
  4. BILASTINE [Suspect]
     Active Substance: BILASTINE
     Dosage: 40 MILLIGRAM, QD
     Route: 048
     Dates: end: 201612
  5. BILASTINE [Suspect]
     Active Substance: BILASTINE
     Dosage: 60 MILLIGRAM, QD
     Route: 048
     Dates: start: 20160226
  6. BILASTINE [Suspect]
     Active Substance: BILASTINE
     Dosage: 20 MILLIGRAM, QD
     Route: 048
     Dates: start: 2016, end: 2016
  7. BILASTINE [Suspect]
     Active Substance: BILASTINE
     Dosage: 40 MILLIGRAM, QD
     Route: 048
     Dates: start: 2016, end: 201602
  8. DIPROPHOS [Concomitant]
     Active Substance: BETAMETHASONE DIPROPIONATE\BETAMETHASONE SODIUM PHOSPHATE
     Indication: CHRONIC SPONTANEOUS URTICARIA
     Dosage: 1 MILLILITER
     Route: 030
     Dates: start: 20160203
  9. AZITHROMYCIN ANHYDROUS. [Suspect]
     Active Substance: AZITHROMYCIN ANHYDROUS
     Dosage: 500 MILLIGRAM, QD
     Route: 065
     Dates: start: 20160203, end: 20160209
  10. OMALIZUMAB. [Concomitant]
     Active Substance: OMALIZUMAB
     Indication: PRODUCT USED FOR UNKNOWN INDICATION
     Dosage: UNK
  11. PREDNISONE. [Suspect]
     Active Substance: PREDNISONE
     Dosage: 40 MG, QD
     Route: 048
     Dates: start: 201602, end: 2016
  12. BETAMETHASONE. [Concomitant]
     Active Substance: BETAMETHASONE
     Indication: CHRONIC SPONTANEOUS URTICARIA
     Dosage: UNK UNK, UNKNOWN FREQ.
     Route: 061
  13. DESLORATADINE. [Suspect]
     Active Substance: DESLORATADINE
     Dosage: 5 MILLIGRAM, QD
     Route: 048
     Dates: start: 201601, end: 201601
  14. AZITHROMYCIN ANHYDROUS. [Suspect]
     Active Substance: AZITHROMYCIN ANHYDROUS
     Indication: CHRONIC SPONTANEOUS URTICARIA
     Dosage: 500 MILLIGRAM, QD
     Route: 065
     Dates: start: 20160203, end: 20160208
  15. AZITHROMYCIN ANHYDROUS. [Suspect]
     Active Substance: AZITHROMYCIN ANHYDROUS
     Indication: URTICARIA
     Dosage: UNK
  16. AMOXICILLIN. [Suspect]
     Active Substance: AMOXICILLIN
     Dosage: 1 GRAM, BID 1 GRAM, Q12H
     Route: 048
     Dates: start: 20160226
  17. BILASTINE [Suspect]
     Active Substance: BILASTINE
     Indication: CHRONIC SPONTANEOUS URTICARIA
     Dosage: 20 MILLIGRAM, QD
     Route: 048
     Dates: start: 201601, end: 201601
  18. BILASTINE [Suspect]
     Active Substance: BILASTINE
     Dosage: 40 MILLIGRAM, QD
     Route: 048
     Dates: start: 2016, end: 201602
  19. BETAMETHASONE DIPROPIONATE. [Concomitant]
     Active Substance: BETAMETHASONE DIPROPIONATE
     Indication: CHRONIC SPONTANEOUS URTICARIA
     Dosage: UNK
     Route: 030
  20. DIPROPHOS [Concomitant]
     Active Substance: BETAMETHASONE DIPROPIONATE\BETAMETHASONE SODIUM PHOSPHATE
     Indication: URTICARIA
     Dosage: 1 MILLILITER, QD (1 ML, UNKNOWN FREQ.)
     Route: 030
     Dates: start: 201602
  21. AMOXICILLIN. [Suspect]
     Active Substance: AMOXICILLIN
     Indication: CHRONIC SPONTANEOUS URTICARIA
     Dosage: UNK UNK, UNKNOWN FREQ.
     Route: 048
  22. AMOXICILLIN. [Suspect]
     Active Substance: AMOXICILLIN
     Indication: URTICARIA
     Dosage: UNK
     Route: 048
     Dates: start: 20160226
  23. BILASTINE [Suspect]
     Active Substance: BILASTINE
     Dosage: 60 MILLIGRAM
     Route: 048
  24. BILASTINE [Suspect]
     Active Substance: BILASTINE
     Dosage: 40 MILLIGRAM, QD
     Route: 048
     Dates: start: 201601, end: 20160226
  25. BISULEPIN HYDROCHLORIDE [Concomitant]
     Active Substance: BISULEPIN HYDROCHLORIDE
     Dosage: UNK
     Route: 065
  26. XOLAIR [Concomitant]
     Active Substance: OMALIZUMAB
     Indication: CHRONIC SPONTANEOUS URTICARIA
     Dosage: UNK UNK, CYCLE UNK UNK, UNKNOWN FREQ.
     Route: 065
     Dates: start: 201604
  27. BETAMETHASONE DIPROPIONATE. [Concomitant]
     Active Substance: BETAMETHASONE DIPROPIONATE
     Indication: URTICARIA
     Dosage: UNK
     Route: 030
  28. DESLORATADINE. [Suspect]
     Active Substance: DESLORATADINE
     Indication: URTICARIA
     Dosage: 5 MILLIGRAM, QD
  29. PREDNISONE. [Suspect]
     Active Substance: PREDNISONE
     Dosage: 10 MILLIGRAM, QD
     Route: 048
     Dates: start: 2016
  30. BILASTINE [Suspect]
     Active Substance: BILASTINE
     Dosage: 40 MILLIGRAM, QD
     Route: 048
     Dates: start: 201612
  31. PREDNISONE. [Suspect]
     Active Substance: PREDNISONE
     Dosage: 10 MILLIGRAM, QD
     Route: 048
     Dates: end: 2016
  32. BILASTINE [Suspect]
     Active Substance: BILASTINE
     Indication: URTICARIA CHRONIC
     Dosage: 20 MILLIGRAM, QD
     Route: 048
     Dates: start: 2016, end: 2016
  33. XOLAIR [Concomitant]
     Active Substance: OMALIZUMAB
     Dosage: UNK UNK, CYCLIC
     Route: 065
     Dates: start: 20161221
  34. XOLAIR [Concomitant]
     Active Substance: OMALIZUMAB
     Dosage: UNK
     Route: 065
  35. PREDNISONE. [Suspect]
     Active Substance: PREDNISONE
     Indication: URTICARIA
     Dosage: 60 MILLIGRAM, QD
     Route: 048
     Dates: start: 20160212, end: 201602
  36. PREDNISONE. [Suspect]
     Active Substance: PREDNISONE
     Dosage: 10 MILLIGRAM, QD
     Route: 048
     Dates: start: 201612
  37. PREDNISONE. [Suspect]
     Active Substance: PREDNISONE
     Dosage: 10 MILLIGRAM, QD
     Route: 048
  38. AMOXICILLIN. [Suspect]
     Active Substance: AMOXICILLIN
     Indication: PYREXIA
     Dosage: 1 GRAM, BID 1 GRAM, Q12H
     Route: 048
     Dates: start: 20160226
  39. BILASTINE [Suspect]
     Active Substance: BILASTINE
     Dosage: 60 MILLIGRAM, QD
     Route: 048
     Dates: start: 201602
  40. BISULEPIN HYDROCHLORIDE [Concomitant]
     Active Substance: BISULEPIN HYDROCHLORIDE
     Indication: PRODUCT USED FOR UNKNOWN INDICATION
     Dosage: UNK UNK, UNKNOWN FREQ.
     Route: 065
  41. BETAMETHASONE DIPROPIONATE. [Concomitant]
     Active Substance: BETAMETHASONE DIPROPIONATE
     Dosage: 1 ML, UNKNOWN FREQ.
     Route: 030
     Dates: start: 201602
  42. BETAMETHASONE SODIUM PHOSPHATE [Concomitant]
     Active Substance: BETAMETHASONE SODIUM PHOSPHATE
     Indication: CHRONIC SPONTANEOUS URTICARIA
     Dosage: UNK
     Route: 030
  43. BETAMETHASONE SODIUM PHOSPHATE [Concomitant]
     Active Substance: BETAMETHASONE SODIUM PHOSPHATE
     Indication: URTICARIA
     Dosage: UNK
     Route: 030

REACTIONS (8)
  - Abdominal pain lower [Recovered/Resolved]
  - Polycythaemia [Unknown]
  - Leukocytosis [Unknown]
  - Rash vesicular [Recovering/Resolving]
  - Nausea [Recovered/Resolved]
  - Drug ineffective [Unknown]
  - Oropharyngeal discomfort [Recovered/Resolved]
  - Prescribed overdose [Unknown]

NARRATIVE: CASE EVENT DATE: 2016
